FAERS Safety Report 9410161 (Version 1)
Quarter: 2013Q3

REPORT INFORMATION
  Report Type: Spontaneous
  Country: US (occurrence: US)
  Receive Date: 20130719
  Receipt Date: 20130719
  Transmission Date: 20140515
  Serious: No
  Sender: FDA-Public Use
  Company Number: US-BAYER-2013-087324

PATIENT
  Age: 69 Year
  Sex: Female
  Weight: 81.63 kg

DRUGS (6)
  1. VANQUISH [Suspect]
     Indication: ARTHRITIS
     Dosage: 3 DF, PRN
     Route: 048
  2. ALEVE CAPLET [Suspect]
     Route: 048
  3. HYDROXYUREA [Concomitant]
  4. CENTRUM SILVER [Concomitant]
  5. SLOW FE [Concomitant]
  6. D3 VIGANTOL FORTE [Concomitant]

REACTIONS (2)
  - Extra dose administered [None]
  - Drug ineffective [None]
